FAERS Safety Report 6721886-1 (Version None)
Quarter: 2010Q2

REPORT INFORMATION
  Report Type: 
  Country: None (occurrence: None)
  Receive Date: 20100512
  Receipt Date: 20100430
  Transmission Date: 20101027
  Serious: Yes (Other)
  Sender: FDA-Public Use
  Company Number: PHHY2010US28229

PATIENT
  Sex: Female

DRUGS (1)
  1. FEMARA [Suspect]
     Dosage: 2.5 MG, QD
     Route: 048

REACTIONS (8)
  - APATHY [None]
  - DEPRESSION [None]
  - FATIGUE [None]
  - FEELING ABNORMAL [None]
  - HEADACHE [None]
  - MEMORY IMPAIRMENT [None]
  - PAIN [None]
  - QUALITY OF LIFE DECREASED [None]
